FAERS Safety Report 6662484-8 (Version None)
Quarter: 2010Q1

REPORT INFORMATION
  Report Type: 
  Country: None (occurrence: None)
  Receive Date: 20100329
  Receipt Date: 20100316
  Transmission Date: 20100710
  Serious: Yes (Death, Hospitalization)
  Sender: FDA-Public Use
  Company Number: RB-00757-2010

PATIENT
  Sex: Male

DRUGS (8)
  1. SUBOXONE [Suspect]
     Indication: DRUG DEPENDENCE
     Dosage: 4 MG QID SUBLINGUAL
     Route: 060
  2. BENZODIAZEPINE DERIVATIVES [Suspect]
     Indication: DRUG USE FOR UNKNOWN INDICATION
  3. ATIVAN [Suspect]
     Indication: DELIRIUM TREMENS
  4. ATIVAN [Suspect]
     Indication: HALLUCINATION
  5. VALIUM [Suspect]
     Indication: DELIRIUM TREMENS
  6. VALIUM [Suspect]
     Indication: HALLUCINATION
  7. LIBRIUM [Suspect]
     Indication: DELIRIUM TREMENS
  8. LIBRIUM [Suspect]
     Indication: HALLUCINATION

REACTIONS (1)
  - RESPIRATORY ARREST [None]
